FAERS Safety Report 8337008-X (Version None)
Quarter: 2012Q2

REPORT INFORMATION
  Report Type: 
  Country: None (occurrence: None)
  Receive Date: 20120501
  Receipt Date: 20120416
  Transmission Date: 20120825
  Serious: Yes (Other)
  Sender: FDA-Public Use
  Company Number: 2012MA005046

PATIENT
  Age: 20 Year
  Sex: Male

DRUGS (5)
  1. STIRIPENTOL [Concomitant]
  2. CARBAMAZEPINE [Suspect]
     Indication: CONVULSION
  3. TOPIRAMATE [Concomitant]
  4. LEVETIRACETAM [Concomitant]
  5. VALPROATE SODIUM [Concomitant]

REACTIONS (10)
  - MYOCLONUS [None]
  - SPEECH DISORDER DEVELOPMENTAL [None]
  - GAIT DISTURBANCE [None]
  - CONVULSION [None]
  - CONDITION AGGRAVATED [None]
  - AUTISM [None]
  - PARTIAL SEIZURES [None]
  - THERAPEUTIC RESPONSE DECREASED [None]
  - DEVELOPMENTAL DELAY [None]
  - PSYCHOMOTOR SKILLS IMPAIRED [None]
